FAERS Safety Report 17391374 (Version 1)
Quarter: 2020Q1

REPORT INFORMATION
  Report Type: Other
  Country: DE (occurrence: DE)
  Receive Date: 20200207
  Receipt Date: 20200207
  Transmission Date: 20200409
  Serious: Yes (Other)
  Sender: FDA-Public Use
  Company Number: DE-CELLTRION INC.-2020DE018447

PATIENT

DRUGS (26)
  1. RITUXIMAB (UNKNOWN) [Suspect]
     Active Substance: RITUXIMAB
     Dosage: 1ST LINE, R-CHOP 6 CYCLES
     Route: 065
     Dates: start: 201710, end: 201801
  2. RITUXIMAB (UNKNOWN) [Suspect]
     Active Substance: RITUXIMAB
     Dosage: FURTHER LINE, R-DHAP 2 CYCLES
     Route: 065
     Dates: start: 201812, end: 201901
  3. ETOPOSIDE. [Concomitant]
     Active Substance: ETOPOSIDE
  4. RITUXIMAB (UNKNOWN) [Suspect]
     Active Substance: RITUXIMAB
     Dosage: 2ND LINE, R-GDP 1 CYCLE
     Route: 065
     Dates: start: 201811, end: 201811
  5. GEMCITABINE. [Suspect]
     Active Substance: GEMCITABINE
     Indication: DIFFUSE LARGE B-CELL LYMPHOMA
     Dosage: 2ND LINE THERAPY; R-GDP 1 CYCLE.
     Route: 065
     Dates: start: 201811, end: 201811
  6. CARMUSTINE. [Concomitant]
     Active Substance: CARMUSTINE
  7. RITUXIMAB (UNKNOWN) [Suspect]
     Active Substance: RITUXIMAB
     Dosage: 2ND LINE, R-GDP 1 CYCLE
     Route: 065
     Dates: start: 201811, end: 201811
  8. CISPLATIN. [Suspect]
     Active Substance: CISPLATIN
     Dosage: 2ND LINE THERAPY; R-GDP 1 CYCLE
     Route: 065
     Dates: start: 201811, end: 201811
  9. DEXAMETHASONE. [Suspect]
     Active Substance: DEXAMETHASONE
     Dosage: FURTHER LINES; R-DHAP 2 CYCLES.
     Route: 065
     Dates: start: 201812, end: 201901
  10. MELPHALAN. [Concomitant]
     Active Substance: MELPHALAN
  11. CYCLOPHOSPHAMIDE. [Suspect]
     Active Substance: CYCLOPHOSPHAMIDE
     Indication: DIFFUSE LARGE B-CELL LYMPHOMA
     Dosage: 1ST LINE, R-CHOP 6 CYCLES
     Route: 065
     Dates: start: 201710, end: 201801
  12. DEXAMETHASONE. [Suspect]
     Active Substance: DEXAMETHASONE
     Indication: DIFFUSE LARGE B-CELL LYMPHOMA
     Dosage: 2ND LINE THERAPY; R-GDP 1 CYCLE.
     Route: 065
     Dates: start: 201811, end: 201811
  13. DEXAMETHASONE. [Suspect]
     Active Substance: DEXAMETHASONE
     Dosage: 2ND LINE THERAPY; R-GDP 1 CYCLE.
     Route: 065
     Dates: start: 201811, end: 201811
  14. CYTARABINE. [Suspect]
     Active Substance: CYTARABINE
     Indication: DIFFUSE LARGE B-CELL LYMPHOMA
     Dosage: FURTHER LINES; R-DHAP 2 CYCLES
     Route: 065
     Dates: start: 201812, end: 201901
  15. RITUXIMAB (UNKNOWN) [Suspect]
     Active Substance: RITUXIMAB
     Dosage: 1ST LINE, R-CHOP 6 CYCLES
     Route: 065
     Dates: start: 201710, end: 201801
  16. RITUXIMAB (UNKNOWN) [Suspect]
     Active Substance: RITUXIMAB
     Dosage: 2ND LINE, R-GDP 1 CYCLE
     Route: 065
     Dates: start: 201811, end: 201811
  17. RITUXIMAB (UNKNOWN) [Suspect]
     Active Substance: RITUXIMAB
     Indication: DIFFUSE LARGE B-CELL LYMPHOMA
     Dosage: 1ST LINE, R-CHOP 6 CYCLES
     Route: 065
     Dates: start: 201710, end: 201801
  18. CISPLATIN. [Suspect]
     Active Substance: CISPLATIN
     Dosage: FURTHER LINE; R-DHAP 2 CYCLES.
     Route: 065
     Dates: start: 201812, end: 201901
  19. CISPLATIN. [Suspect]
     Active Substance: CISPLATIN
     Dosage: FURTHER LINE; R-DHAP 2 CYCLES.
     Route: 065
     Dates: start: 201812, end: 201901
  20. DOXORUBICIN [Suspect]
     Active Substance: DOXORUBICIN
     Indication: DIFFUSE LARGE B-CELL LYMPHOMA
     Dosage: 1ST LINE, R-CHOP 6 CYCLES
     Route: 065
     Dates: start: 201710, end: 201801
  21. DEXAMETHASONE. [Suspect]
     Active Substance: DEXAMETHASONE
     Dosage: FURTHER LINES; R-DHAP 2 CYCLES.
     Route: 065
     Dates: start: 201812, end: 201901
  22. PREDNISONE. [Suspect]
     Active Substance: PREDNISONE
     Indication: DIFFUSE LARGE B-CELL LYMPHOMA
     Dosage: 1ST LINE, R-CHOP 6 CYCLES
     Route: 065
     Dates: start: 201810, end: 201901
  23. RITUXIMAB (UNKNOWN) [Suspect]
     Active Substance: RITUXIMAB
     Dosage: FURTHER LINE, R-DHAP 2 CYCLES
     Route: 065
     Dates: start: 201812, end: 201901
  24. RITUXIMAB (UNKNOWN) [Suspect]
     Active Substance: RITUXIMAB
     Dosage: FURTHER LINE, R-DHAP 2 CYCLES
     Route: 065
     Dates: start: 201812, end: 201901
  25. CISPLATIN. [Suspect]
     Active Substance: CISPLATIN
     Indication: DIFFUSE LARGE B-CELL LYMPHOMA
     Dosage: 2ND LINE THERAPY; R-GDP 1 CYCLE
     Route: 065
     Dates: start: 201811, end: 201811
  26. VINCRISTINE [Suspect]
     Active Substance: VINCRISTINE
     Indication: DIFFUSE LARGE B-CELL LYMPHOMA
     Dosage: 1ST LINE, R-CHOP 6 CYCLES
     Route: 065
     Dates: start: 201810, end: 201901

REACTIONS (3)
  - Pneumonia influenzal [Unknown]
  - Haemoglobin decreased [Unknown]
  - Tachyarrhythmia [Unknown]
